FAERS Safety Report 6354166-7 (Version None)
Quarter: 2009Q3

REPORT INFORMATION
  Report Type: 
  Country: None (occurrence: None)
  Receive Date: 20090914
  Receipt Date: 20090815
  Transmission Date: 20100115
  Serious: No
  Sender: FDA-Public Use
  Company Number: JP-ROCHE-652465

PATIENT
  Sex: Female

DRUGS (3)
  1. TAMIFLU [Suspect]
     Indication: DRUG USE FOR UNKNOWN INDICATION
     Route: 048
     Dates: start: 20090813, end: 20090813
  2. TAMIFLU [Suspect]
     Route: 048
     Dates: start: 20090814, end: 20090814
  3. TAMIFLU [Suspect]
     Route: 048
     Dates: start: 20090815

REACTIONS (2)
  - ACCIDENTAL OVERDOSE [None]
  - NO ADVERSE EVENT [None]
